FAERS Safety Report 25164002 (Version 1)
Quarter: 2025Q2

REPORT INFORMATION
  Report Type: Report from Study
  Country: US (occurrence: US)
  Receive Date: 20250405
  Receipt Date: 20250405
  Transmission Date: 20250716
  Serious: Yes (Other)
  Sender: AUROBINDO
  Company Number: US-AUROBINDO-AUR-APL-2021-039976

PATIENT

DRUGS (2)
  1. METHOTREXATE [Suspect]
     Active Substance: METHOTREXATE
     Indication: Haematological malignancy
     Route: 065
  2. GLUCARPIDASE [Concomitant]
     Active Substance: GLUCARPIDASE
     Indication: Product used for unknown indication
     Route: 065

REACTIONS (1)
  - Nephropathy toxic [Unknown]
